FAERS Safety Report 7614131-6 (Version None)
Quarter: 2011Q3

REPORT INFORMATION
  Report Type: 
  Country: None (occurrence: None)
  Receive Date: 20110708
  Receipt Date: 20110621
  Transmission Date: 20111222
  Serious: Yes (Other)
  Sender: FDA-Public Use
  Company Number: 2011P1007299

PATIENT
  Age: 46 Year
  Sex: Male
  Weight: 87.6 kg

DRUGS (4)
  1. LAMOTRIGINE [Suspect]
  2. LAMOTRIGINE [Suspect]
     Indication: CONVULSION
     Dosage: 200 MG; BID; PO
     Route: 048
     Dates: start: 20100524
  3. LAMOTRIGINE [Suspect]
     Indication: CONVULSION
     Dosage: 200 MG; BID; PO
     Route: 048
     Dates: start: 20110607
  4. VINPAT [Concomitant]

REACTIONS (2)
  - CONVULSION [None]
  - PRODUCT QUALITY ISSUE [None]
